FAERS Safety Report 5943626-6 (Version None)
Quarter: 2008Q4

REPORT INFORMATION
  Report Type: 
  Country: None (occurrence: None)
  Receive Date: 20081106
  Receipt Date: 20080813
  Transmission Date: 20090506
  Serious: Yes (Hospitalization)
  Sender: FDA-Public Use
  Company Number: TW-PFIZER INC-2006038050

PATIENT
  Sex: Female
  Weight: 60 kg

DRUGS (4)
  1. SU-011,248 [Suspect]
     Indication: METASTATIC RENAL CELL CARCINOMA
     Route: 048
     Dates: start: 20060109
  2. LORAZEPAM [Concomitant]
     Route: 048
     Dates: start: 20060105, end: 20060111
  3. BENZBROMARONE [Concomitant]
     Route: 048
     Dates: start: 20060105, end: 20060111
  4. ZOPICLONE [Concomitant]
     Route: 048
     Dates: start: 20060213, end: 20060216

REACTIONS (5)
  - EPISTAXIS [None]
  - HYPERTENSION [None]
  - JAUNDICE [None]
  - OEDEMA [None]
  - THROMBOCYTOPENIA [None]
